FAERS Safety Report 7219295-4 (Version None)
Quarter: 2011Q1

REPORT INFORMATION
  Report Type: 
  Country: None (occurrence: None)
  Receive Date: 20110111
  Receipt Date: 20101229
  Transmission Date: 20110831
  Serious: Yes (Other)
  Sender: FDA-Public Use
  Company Number: US-PFIZER INC-2010181472

PATIENT
  Sex: Female
  Weight: 47.619 kg

DRUGS (8)
  1. ACETYLSALICYLIC ACID [Concomitant]
     Indication: CARDIAC DISORDER
  2. NEURONTIN [Concomitant]
     Indication: NEUROPATHY PERIPHERAL
     Dosage: 800 MG, 1X/DAY
     Route: 048
  3. VENLAFAXINE [Concomitant]
     Indication: DEPRESSION
     Dosage: 25 MG, 1X/DAY
     Route: 048
  4. ACETYLSALICYLIC ACID [Concomitant]
     Indication: BLOOD DISORDER
     Dosage: 81 MG, 1X/DAY
     Route: 048
  5. LYRICA [Suspect]
     Indication: NEUROPATHY PERIPHERAL
     Dosage: 50 MG, 2X/DAY
     Route: 048
     Dates: start: 20101217, end: 20101219
  6. AMITRIPTYLINE [Concomitant]
     Indication: MUSCLE DISORDER
     Dosage: 25 MG, 1X/DAY
     Route: 048
  7. LYRICA [Suspect]
     Dosage: 75 MG, 2X/DAY
     Route: 048
     Dates: start: 20101220, end: 20101222
  8. AMITRIPTYLINE [Concomitant]
     Indication: SLEEP DISORDER

REACTIONS (2)
  - DIZZINESS [None]
  - DIPLOPIA [None]
